FAERS Safety Report 7266506-5 (Version None)
Quarter: 2011Q1

REPORT INFORMATION
  Report Type: 
  Country: None (occurrence: None)
  Receive Date: 20110131
  Receipt Date: 20110127
  Transmission Date: 20110831
  Serious: Yes (Death)
  Sender: FDA-Public Use
  Company Number: FR-ABBOTT-11P-056-0700859-00

PATIENT
  Sex: Male
  Weight: 72 kg

DRUGS (6)
  1. NOCTAMIDE [Concomitant]
     Indication: INSOMNIA
     Dates: start: 20100608, end: 20110127
  2. KALETRA [Suspect]
     Indication: HIV INFECTION
     Route: 048
     Dates: start: 20101028, end: 20110127
  3. ZELITREX [Concomitant]
     Indication: HERPES VIRUS INFECTION
     Dates: start: 20060106, end: 20100127
  4. LOPERAMIDE HCL [Concomitant]
     Indication: DIARRHOEA
     Dates: start: 20101202, end: 20110127
  5. IMODIUM [Concomitant]
     Indication: DIARRHOEA
  6. TRIMEPRAZINE TARTRATE [Concomitant]
     Indication: INSOMNIA
     Dates: start: 20100929, end: 20110127

REACTIONS (1)
  - DEATH [None]
